FAERS Safety Report 20092095 (Version 1)
Quarter: 2021Q4

REPORT INFORMATION
  Report Type: Spontaneous
  Country: US (occurrence: None)
  Receive Date: 20211119
  Receipt Date: 20211119
  Transmission Date: 20220304
  Serious: Yes (Death, Hospitalization)
  Sender: FDA-Public Use
  Company Number: None

PATIENT
  Age: 74 Year
  Sex: Male
  Weight: 92 kg

DRUGS (1)
  1. TOCILIZUMAB [Suspect]
     Active Substance: TOCILIZUMAB
     Indication: Upper respiratory tract infection
     Dosage: FREQUENCY : ONCE;?
     Route: 042
     Dates: start: 20210723, end: 20210723

REACTIONS (17)
  - Renal impairment [None]
  - Acute myocardial infarction [None]
  - Myocarditis [None]
  - Ejection fraction decreased [None]
  - Pancreatitis [None]
  - Ileus [None]
  - Small intestinal obstruction [None]
  - Intestinal ischaemia [None]
  - Hyperglycaemia [None]
  - Thrombocytopenia [None]
  - Providencia infection [None]
  - Enterobacter test positive [None]
  - Fungal test positive [None]
  - Acute kidney injury [None]
  - Pneumonia fungal [None]
  - Multiple organ dysfunction syndrome [None]
  - Death [None]

NARRATIVE: CASE EVENT DATE: 20210806
